FAERS Safety Report 6924162-7 (Version None)
Quarter: 2010Q3

REPORT INFORMATION
  Report Type: 
  Country: None (occurrence: None)
  Receive Date: 20100812
  Receipt Date: 20100812
  Transmission Date: 20110219
  Serious: Yes (Hospitalization)
  Sender: FDA-Public Use
  Company Number: None

PATIENT
  Sex: Female
  Weight: 79.8331 kg

DRUGS (1)
  1. XELODA [Suspect]
     Indication: COLON CANCER
     Dosage: 1250 MG/M2 DAILY PO
     Route: 048
     Dates: start: 20100724, end: 20100807

REACTIONS (5)
  - APHAGIA [None]
  - BLISTER [None]
  - DEHYDRATION [None]
  - ORAL PAIN [None]
  - RENAL FAILURE ACUTE [None]
